FAERS Safety Report 4749918-0 (Version None)
Quarter: 2005Q3

REPORT INFORMATION
  Report Type: 
  Country: None (occurrence: None)
  Receive Date: 20050822
  Receipt Date: 20050803
  Transmission Date: 20060218
  Serious: Yes (Death, Disabling)
  Sender: FDA-Public Use
  Company Number: 2005JP001574

PATIENT
  Age: 58 Year
  Sex: Female

DRUGS (9)
  1. FUNGUARD(MICAFUNGIN) INJECTION [Suspect]
     Dosage: SEE IMAGE
     Route: 041
     Dates: start: 20050620, end: 20050622
  2. FUNGUARD(MICAFUNGIN) INJECTION [Suspect]
     Dosage: SEE IMAGE
     Route: 041
     Dates: start: 20050623, end: 20050709
  3. MEROPENEM (MEROPENEM) INJECTION [Concomitant]
  4. NEUTROGIN (LENOGRASTIM) INJECTION [Concomitant]
  5. ELASPOL (SIVELESTAT) INJECTION [Concomitant]
  6. ERYTHROCIN (ERYTHROMYCIN) INJECTION [Concomitant]
  7. HYDROCORTONE (HYDROCORTISONE) INJECTION [Concomitant]
  8. PREDNISOLONE [Concomitant]
  9. REMINARON (GABEXATE MESILATE) INJECTION [Concomitant]

REACTIONS (3)
  - CONDITION AGGRAVATED [None]
  - HYPERCALCAEMIA [None]
  - NEOPLASM MALIGNANT [None]
